FAERS Safety Report 9683911 (Version 1)
Quarter: 2013Q4

REPORT INFORMATION
  Report Type: Spontaneous
  Country: US (occurrence: US)
  Receive Date: 20131112
  Receipt Date: 20131112
  Transmission Date: 20140711
  Serious: No
  Sender: FDA-Public Use
  Company Number: US-MALLINCKRODT-T201304605

PATIENT
  Age: 72 Year
  Sex: Female
  Weight: 77.98 kg

DRUGS (13)
  1. FENTANYL TRANSDERMAL SYSTEM [Suspect]
     Indication: SCIATICA
     Dosage: 100 UG/HR, Q 3 DAYS
     Route: 062
  2. ICY HOT /00021213/ [Suspect]
     Indication: MYALGIA
     Dosage: 1 PATCH
     Route: 062
     Dates: start: 20131007, end: 20131007
  3. LEVOTHYROXINE [Concomitant]
     Indication: PRODUCT USED FOR UNKNOWN INDICATION
     Route: 048
  4. ASPIRIN [Concomitant]
     Indication: PRODUCT USED FOR UNKNOWN INDICATION
     Dosage: 81 MG, QD
     Route: 048
  5. GABAPENTIN [Concomitant]
     Indication: PRODUCT USED FOR UNKNOWN INDICATION
     Dosage: Q 8HRS
     Route: 048
  6. CILOSTAZOL [Concomitant]
     Indication: PRODUCT USED FOR UNKNOWN INDICATION
     Dosage: 100 MG, UNK
     Route: 048
  7. OXYCODONE/APAP                     /01601701/ [Concomitant]
     Indication: BREAKTHROUGH PAIN
     Dosage: 5/325 MG PRN
     Route: 048
  8. IRON [Concomitant]
     Indication: PRODUCT USED FOR UNKNOWN INDICATION
     Dosage: 65 MG, BID
     Route: 048
  9. CALTRATE                           /00944201/ [Concomitant]
     Indication: PRODUCT USED FOR UNKNOWN INDICATION
     Dosage: 600 MG, BID
     Route: 048
  10. ATENOLOL [Concomitant]
     Indication: PRODUCT USED FOR UNKNOWN INDICATION
     Dosage: 25 MG, QD
     Route: 048
  11. AMLODIPINE [Concomitant]
     Indication: PRODUCT USED FOR UNKNOWN INDICATION
     Dosage: 10 MG, QD
     Route: 048
  12. PANTOPRAZOLE [Concomitant]
     Indication: PRODUCT USED FOR UNKNOWN INDICATION
     Dosage: 40 MG, QD
     Route: 048
  13. HYDROCHLOROTHIAZIDE [Concomitant]
     Indication: PRODUCT USED FOR UNKNOWN INDICATION
     Dosage: 25 MG, QD
     Route: 048

REACTIONS (3)
  - Feeling abnormal [Recovered/Resolved]
  - Restlessness [Recovered/Resolved]
  - Pruritus generalised [Recovered/Resolved]
